FAERS Safety Report 14844627 (Version 2)
Quarter: 2018Q2

REPORT INFORMATION
  Report Type: Spontaneous
  Country: JP (occurrence: JP)
  Receive Date: 20180503
  Receipt Date: 20180503
  Transmission Date: 20180711
  Serious: Yes (Other)
  Sender: FDA-Public Use
  Company Number: PHHY2018JP071345

PATIENT
  Age: 12 Year
  Sex: Female

DRUGS (12)
  1. DEXAMETHASONE. [Suspect]
     Active Substance: DEXAMETHASONE
     Dosage: 100 MG/M2, QDCONSOLIDATION B (DAY 1, 3 AND 5)
     Route: 065
  2. L-ASPARAGINASE [Suspect]
     Active Substance: ASPARAGINASE
     Dosage: 10000 IU/M2, QD RE-INDUCTION (DAY 1, 3, 5, 8, 10, 12)
     Route: 065
  3. PREDNISOLONE. [Suspect]
     Active Substance: PREDNISOLONE
     Dosage: 40 MG/M2, QD CONSOLIDATION A (DAY 1-3, 15-17, 29-31)
     Route: 065
  4. PREDNISOLONE. [Suspect]
     Active Substance: PREDNISOLONE
     Dosage: 40 MG/M2, QD MAINTENANCE 2 (DAY 29-42, 85-99)
     Route: 065
  5. L-ASPARAGINASE [Suspect]
     Active Substance: ASPARAGINASE
     Dosage: 10000 IU/M2, QD MAINTENANCE 2 (DAY 29, 36, 43, 85, 92, 99)
     Route: 065
  6. PREDNISOLONE. [Suspect]
     Active Substance: PREDNISOLONE
     Indication: ACUTE LYMPHOCYTIC LEUKAEMIA
     Dosage: 40 MG/M2 QD, INDUCTION PHASE (DAY 8-28)
     Route: 065
  7. PREDNISOLONE. [Suspect]
     Active Substance: PREDNISOLONE
     Dosage: 40 MG/M2, QD RE-INDUCTION (DAY 1-14)
     Route: 065
  8. L-ASPARAGINASE [Suspect]
     Active Substance: ASPARAGINASE
     Indication: ACUTE LYMPHOCYTIC LEUKAEMIA
     Dosage: 10000 IU/M2, QD INDUCTION (DAY 9, 11, 13, 16, 18, 20)
     Route: 065
  9. DEXAMETHASONE. [Suspect]
     Active Substance: DEXAMETHASONE
     Indication: ACUTE LYMPHOCYTIC LEUKAEMIA
     Dosage: 10 MG/M2, QD INDUCTION (DAY 1-7)
     Route: 065
  10. PREDNISOLONE. [Suspect]
     Active Substance: PREDNISOLONE
     Dosage: 40 MG/M2, QD MAINTENANCE 1 (DAY 29-42, 85-91)
     Route: 065
  11. L-ASPARAGINASE [Suspect]
     Active Substance: ASPARAGINASE
     Dosage: 20000 IU/M2, QD CONSOLIDATION A (DAY 3)
     Route: 065
  12. L-ASPARAGINASE [Suspect]
     Active Substance: ASPARAGINASE
     Dosage: 10000 IU/M2, QD MAINTENANCE 1 (DAY 29, 36, 43)
     Route: 065

REACTIONS (1)
  - Osteonecrosis [Unknown]
